FAERS Safety Report 9254416 (Version 1)
Quarter: 2013Q2

REPORT INFORMATION
  Report Type: Spontaneous
  Country: NO (occurrence: NO)
  Receive Date: 20130425
  Receipt Date: 20130425
  Transmission Date: 20140414
  Serious: Yes (Other)
  Sender: FDA-Public Use
  Company Number: NO-PFIZER INC-2013128087

PATIENT
  Age: 54 Year
  Sex: Female

DRUGS (9)
  1. XANOR [Suspect]
     Indication: PANIC DISORDER
     Dosage: 0.5 MG, 1X/DAY
     Dates: start: 2012, end: 2012
  2. XANOR [Suspect]
     Indication: ANXIETY
     Dosage: 1 MG, UNK
     Dates: start: 2012, end: 2012
  3. XANOR [Suspect]
     Dosage: 1 MG, 3X/DAY (MORNING, AT NOON AND EVENING)
     Dates: start: 2012, end: 201212
  4. SOBRIL [Suspect]
     Indication: INSOMNIA
     Dosage: 25 MG, 2X/DAY
  5. SOBRIL [Suspect]
     Indication: ANXIETY
  6. PARALGIN FORTE [Concomitant]
     Indication: BACK PAIN
     Dosage: UNK
  7. FLUANXOL [Concomitant]
     Indication: ANXIETY
     Dosage: UNK
  8. STESOLID [Concomitant]
     Indication: ANXIETY
     Dosage: UNK
  9. WELLBUTRIN [Concomitant]
     Indication: DEPRESSION
     Dosage: UNK

REACTIONS (4)
  - Suicidal ideation [Unknown]
  - Suicide attempt [Unknown]
  - Depression [Recovering/Resolving]
  - Drug ineffective [Not Recovered/Not Resolved]
